FAERS Safety Report 17275405 (Version 1)
Quarter: 2020Q1

REPORT INFORMATION
  Report Type: Report from Study
  Country: FR (occurrence: FR)
  Receive Date: 20200116
  Receipt Date: 20200116
  Transmission Date: 20200409
  Serious: Yes (Other)
  Sender: FDA-Public Use
  Company Number: FR-ROCHE-2286516

PATIENT

DRUGS (3)
  1. GEMCITABINE. [Suspect]
     Active Substance: GEMCITABINE
     Indication: B-CELL LYMPHOMA
     Dosage: ON DAYS 1, 8 AND 15 OF A 28-DAY CYCLE
     Route: 065
  2. PIXANTRONE [Suspect]
     Active Substance: PIXANTRONE
     Indication: B-CELL LYMPHOMA
     Dosage: ON DAYS 1, 8 AND 15 OF A 28-DAY CYCLE
     Route: 065
  3. RITUXIMAB. [Suspect]
     Active Substance: RITUXIMAB
     Indication: B-CELL LYMPHOMA
     Dosage: ON DAY 1, FOR UP TO 6 CYCLES
     Route: 042

REACTIONS (16)
  - Atrial fibrillation [Unknown]
  - Supraventricular tachycardia [Unknown]
  - Stress cardiomyopathy [Unknown]
  - Thrombocytopenia [Unknown]
  - Acute myocardial infarction [Unknown]
  - Cardiac failure congestive [Unknown]
  - Anaemia [Unknown]
  - Cardiomyopathy [Unknown]
  - Myocardial infarction [Unknown]
  - Left ventricular dysfunction [Unknown]
  - Syncope [Unknown]
  - Cytotoxic cardiomyopathy [Unknown]
  - Atrial thrombosis [Unknown]
  - Tachycardia [Unknown]
  - Neutropenia [Unknown]
  - Cardiac failure [Unknown]
